FAERS Safety Report 15808775 (Version 2)
Quarter: 2019Q1

REPORT INFORMATION
  Report Type: Spontaneous
  Country: US (occurrence: US)
  Receive Date: 20190110
  Receipt Date: 20190301
  Transmission Date: 20190417
  Serious: No
  Sender: FDA-Public Use
  Company Number: US-SA-2019SA006521

PATIENT
  Age: 47 Year
  Sex: Male

DRUGS (1)
  1. DUPIXENT [Suspect]
     Active Substance: DUPILUMAB
     Dosage: UNK
     Route: 058
     Dates: start: 201808

REACTIONS (6)
  - Dermatitis atopic [Unknown]
  - Eyelids pruritus [Unknown]
  - Eyelid pain [Unknown]
  - Erythema of eyelid [Unknown]
  - Product dose omission [Unknown]
  - Eye discharge [Unknown]

NARRATIVE: CASE EVENT DATE: 20190104
